FAERS Safety Report 23893366 (Version 2)
Quarter: 2024Q2

REPORT INFORMATION
  Report Type: Spontaneous
  Country: PL (occurrence: PL)
  Receive Date: 20240524
  Receipt Date: 20240606
  Transmission Date: 20240716
  Serious: Yes (Hospitalization, Other)
  Sender: FDA-Public Use
  Company Number: PL-BELUPO-SafetyCase004048

PATIENT
  Age: 31 Year
  Sex: Male

DRUGS (44)
  1. KETOPROFEN [Suspect]
     Active Substance: KETOPROFEN
     Indication: Analgesic therapy
     Dosage: 100 MG (INJECTION)
     Route: 042
  2. KETOPROFEN [Suspect]
     Active Substance: KETOPROFEN
     Indication: Back pain
  3. MORPHINE [Suspect]
     Active Substance: MORPHINE
     Indication: Analgesic therapy
     Dosage: 10 MG, UNKNOWN
     Route: 042
  4. MORPHINE [Suspect]
     Active Substance: MORPHINE
     Indication: Back pain
  5. ACETAMINOPHEN\TRAMADOL HYDROCHLORIDE [Suspect]
     Active Substance: ACETAMINOPHEN\TRAMADOL HYDROCHLORIDE
     Indication: Back pain
     Dosage: UNK, QD (EVERY 1 DAY)
     Route: 065
  6. ACETAMINOPHEN\TRAMADOL [Suspect]
     Active Substance: ACETAMINOPHEN\TRAMADOL
     Indication: Back pain
     Dosage: 1 DF, BID (AT A DOSE OF 37.5 / 325 MG TWICE A DAY)
     Route: 042
  7. ACETAMINOPHEN\TRAMADOL [Suspect]
     Active Substance: ACETAMINOPHEN\TRAMADOL
     Indication: Sacral pain
  8. AGOMELATINE [Concomitant]
     Active Substance: AGOMELATINE
     Indication: Depression
     Dosage: 25 MG, QD
     Route: 065
  9. BUPRENORPHINE [Concomitant]
     Active Substance: BUPRENORPHINE
     Indication: Back pain
     Dosage: TRANSDERMAL THERAPEUTIC SYSTEM (TTS) AT 17.5 UG/H (HALF A PATCH, 35 UG/H) REPLACED EVERY 72 HOURS
     Route: 062
  10. BUPRENORPHINE [Concomitant]
     Active Substance: BUPRENORPHINE
     Indication: Sleep disorder
     Dosage: TITRATED DOSE
     Route: 060
  11. BUPRENORPHINE [Concomitant]
     Active Substance: BUPRENORPHINE
     Indication: Insomnia
  12. DICLOFENAC [Concomitant]
     Active Substance: DICLOFENAC
     Indication: Back pain
     Dosage: 150 MILLIGRAM, QD
     Route: 065
  13. FUROSEMIDE [Concomitant]
     Active Substance: FUROSEMIDE
     Indication: Cardiac disorder
     Dosage: UNK
     Route: 042
  14. FUROSEMIDE [Concomitant]
     Active Substance: FUROSEMIDE
     Indication: Cardiac disorder
  15. KETAMINE [Concomitant]
     Active Substance: KETAMINE
     Indication: Back pain
     Dosage: UNK
     Route: 042
  16. LORNOXICAM [Concomitant]
     Active Substance: LORNOXICAM
     Indication: Back pain
     Dosage: 8 MG, QD
     Route: 048
  17. MAGNESIUM SULFATE [Concomitant]
     Active Substance: MAGNESIUM SULFATE\MAGNESIUM SULFATE HEPTAHYDRATE
     Indication: Back pain
     Dosage: UNK
     Route: 065
  18. METOPROLOL [Concomitant]
     Active Substance: METOPROLOL
     Indication: Cardiac disorder
     Dosage: UNK
     Route: 065
  19. PITAVASTATIN [Concomitant]
     Active Substance: PITAVASTATIN
     Indication: Product used for unknown indication
     Dosage: 4 MG, QD
     Route: 065
  20. RAMIPRIL [Concomitant]
     Active Substance: RAMIPRIL
     Indication: Sacral pain
     Dosage: 10 MILLIGRAM
     Route: 065
  21. RAMIPRIL [Concomitant]
     Active Substance: RAMIPRIL
     Dosage: 10 MG
     Route: 065
  22. VALPROATE SODIUM [Concomitant]
     Active Substance: VALPROATE SODIUM
     Indication: Back pain
     Dosage: UNK
     Route: 065
  23. ATORVASTATIN [Interacting]
     Active Substance: ATORVASTATIN
     Indication: Dyslipidaemia
     Dosage: 40 MG, QD
     Route: 065
  24. ALPRAZOLAM [Interacting]
     Active Substance: ALPRAZOLAM
     Indication: Affective disorder
     Dosage: 1 MG, QD (PER NIGHT AT BEDTIME), 1 MG HS
     Route: 065
  25. ALPRAZOLAM [Interacting]
     Active Substance: ALPRAZOLAM
     Indication: Anxiety
     Dosage: 1 MG, QD (PER NIGHT AT BEDTIME), 1 MG HS
     Route: 065
  26. ALPRAZOLAM [Interacting]
     Active Substance: ALPRAZOLAM
     Indication: Anorgasmia
  27. ALPRAZOLAM [Interacting]
     Active Substance: ALPRAZOLAM
     Indication: Insomnia
  28. DICLOFENAC [Interacting]
     Active Substance: DICLOFENAC
     Indication: Back pain
     Dosage: 150 MG, QD
     Route: 065
  29. DICLOFENAC [Interacting]
     Active Substance: DICLOFENAC
     Indication: Pain
  30. DICLOFENAC [Interacting]
     Active Substance: DICLOFENAC
     Indication: Sacral pain
  31. RAMIPRIL [Interacting]
     Active Substance: RAMIPRIL
     Indication: Hypertension
     Dosage: 10 MG, QD
     Route: 065
  32. SERTRALINE [Interacting]
     Active Substance: SERTRALINE HYDROCHLORIDE
     Indication: Insomnia
     Dosage: 50 MILLIGRAM, QD
     Route: 065
  33. SERTRALINE [Interacting]
     Active Substance: SERTRALINE HYDROCHLORIDE
     Indication: Affective disorder
  34. SERTRALINE [Interacting]
     Active Substance: SERTRALINE HYDROCHLORIDE
     Indication: Anxiety
  35. SERTRALINE [Interacting]
     Active Substance: SERTRALINE HYDROCHLORIDE
     Indication: Depression
  36. SERTRALINE HYDROCHLORIDE [Interacting]
     Active Substance: SERTRALINE HYDROCHLORIDE
     Indication: Insomnia
     Dosage: 50 MG, QD IN THE MORNING
     Route: 065
  37. SERTRALINE HYDROCHLORIDE [Interacting]
     Active Substance: SERTRALINE HYDROCHLORIDE
     Indication: Affective disorder
  38. SERTRALINE HYDROCHLORIDE [Interacting]
     Active Substance: SERTRALINE HYDROCHLORIDE
     Indication: Anxiety
  39. SERTRALINE HYDROCHLORIDE [Interacting]
     Active Substance: SERTRALINE HYDROCHLORIDE
     Indication: Back pain
  40. SERTRALINE HYDROCHLORIDE [Interacting]
     Active Substance: SERTRALINE HYDROCHLORIDE
     Indication: Depression
  41. TADALAFIL [Interacting]
     Active Substance: TADALAFIL
     Indication: Erectile dysfunction
     Dosage: 10 MG, PRN
     Route: 048
  42. TADALAFIL [Interacting]
     Active Substance: TADALAFIL
     Indication: Erectile dysfunction
     Dosage: 10 MG, PRN (CUMULATIVE DOSE TO FIRST REACTION: 50 MG)
     Route: 048
  43. TADALAFIL [Interacting]
     Active Substance: TADALAFIL
     Indication: Anorgasmia
  44. TADALAFIL [Interacting]
     Active Substance: TADALAFIL
     Indication: Insomnia

REACTIONS (20)
  - Tachypnoea [Recovering/Resolving]
  - Blood pressure increased [Recovering/Resolving]
  - Pain [Unknown]
  - Tachycardia [Recovering/Resolving]
  - Drug interaction [Recovered/Resolved]
  - Erectile dysfunction [Recovered/Resolved]
  - Hyperaesthesia [Recovered/Resolved]
  - Drug level increased [Unknown]
  - Back pain [Recovered/Resolved]
  - Anorgasmia [Recovered/Resolved]
  - Drug ineffective [Unknown]
  - Condition aggravated [Recovered/Resolved]
  - Product use in unapproved indication [Unknown]
  - Back pain [Recovered/Resolved]
  - Neuralgia [Recovered/Resolved]
  - Ill-defined disorder [Unknown]
  - Insomnia [Recovering/Resolving]
  - Sacral pain [Recovered/Resolved]
  - Depression [Unknown]
  - Affective disorder [Recovering/Resolving]
